FAERS Safety Report 4980351-2 (Version None)
Quarter: 2006Q2

REPORT INFORMATION
  Report Type: 
  Country: None (occurrence: None)
  Receive Date: 20060420
  Receipt Date: 20060420
  Transmission Date: 20061013
  Serious: Yes (Disabling)
  Sender: FDA-Public Use
  Company Number: None

PATIENT
  Sex: Female
  Weight: 69.8539 kg

DRUGS (5)
  1. LEVAQUIN [Suspect]
     Indication: PNEUMONIA
     Dosage: 500 MG ORALLY ONCE A DAY X 10 DAYS
     Route: 048
     Dates: start: 20051012, end: 20051022
  2. MULTI-VITAMIN [Concomitant]
  3. VITAMIN B + C [Concomitant]
  4. CALCIUM SUPPLEMENT [Concomitant]
  5. LUTEIN + BETA CAROTENE [Concomitant]

REACTIONS (4)
  - ARTHRALGIA [None]
  - BUTTOCK PAIN [None]
  - JOINT SWELLING [None]
  - SACRAL PAIN [None]
